FAERS Safety Report 17679471 (Version 2)
Quarter: 2024Q2

REPORT INFORMATION
  Report Type: Report from Study
  Country: DE (occurrence: DE)
  Receive Date: 20200417
  Receipt Date: 20240611
  Transmission Date: 20240716
  Serious: Yes (Death, Life-Threatening, Hospitalization)
  Sender: FDA-Public Use
  Company Number: DE-NOVARTISPH-NVSC2020DE081791

PATIENT
  Sex: Female
  Weight: 67 kg

DRUGS (2)
  1. KISQALI [Suspect]
     Active Substance: RIBOCICLIB
     Indication: Breast cancer
     Dosage: 600 MG, QD (SCHEMA 21 DAYS INTAKE, THAN 7 DAYS PAUSE)
     Route: 048
     Dates: start: 20181129, end: 20200318
  2. LETROZOLE [Concomitant]
     Active Substance: LETROZOLE
     Indication: Breast cancer
     Dosage: 2.5 MG, QD
     Route: 048
     Dates: start: 20181129, end: 20200318

REACTIONS (3)
  - Pneumonia [Fatal]
  - Acute respiratory distress syndrome [Fatal]
  - Dyspnoea [Fatal]

NARRATIVE: CASE EVENT DATE: 20200318
